FAERS Safety Report 8236029-5 (Version None)
Quarter: 2012Q1

REPORT INFORMATION
  Report Type: 
  Country: None (occurrence: None)
  Receive Date: 20120326
  Receipt Date: 20120315
  Transmission Date: 20120608
  Serious: Yes (Hospitalization)
  Sender: FDA-Public Use
  Company Number: US-ASTRAZENECA-2010SE40012

PATIENT
  Age: 66 Year
  Sex: Female

DRUGS (4)
  1. NEXIUM [Suspect]
     Route: 048
  2. ATACAND [Suspect]
     Route: 048
  3. COREG [Concomitant]
  4. ATACAND [Suspect]
     Route: 048

REACTIONS (3)
  - VIRAL INFECTION [None]
  - BALANCE DISORDER [None]
  - GAIT DISTURBANCE [None]
